FAERS Safety Report 24077850 (Version 2)
Quarter: 2024Q3

REPORT INFORMATION
  Report Type: Spontaneous
  Country: ES (occurrence: ES)
  Receive Date: 20240711
  Receipt Date: 20240819
  Transmission Date: 20241017
  Serious: Yes (Other)
  Sender: AUROBINDO
  Company Number: ES-OTSUKA-2024_017561

PATIENT
  Age: 47 Year
  Sex: Female

DRUGS (11)
  1. QUETIAPINE [Suspect]
     Active Substance: QUETIAPINE
     Indication: Product used for unknown indication
     Dosage: UNK
     Route: 065
     Dates: start: 20240529
  2. BREXPIPRAZOLE [Suspect]
     Active Substance: BREXPIPRAZOLE
     Indication: Trichotillomania
     Dosage: 1 MILLIGRAM (1 MG (AT NIGHT FOR 3 DAYS) THEN 2 MG)
     Route: 065
     Dates: start: 20240529, end: 20240531
  3. BREXPIPRAZOLE [Suspect]
     Active Substance: BREXPIPRAZOLE
     Indication: Somatic symptom disorder
     Dosage: 2 MILLIGRAM (2 MG (AT NIGHT FOR 8 DAYS))
     Route: 065
     Dates: start: 20240601
  4. BREXPIPRAZOLE [Suspect]
     Active Substance: BREXPIPRAZOLE
     Indication: Adjustment disorder
  5. BREXPIPRAZOLE [Suspect]
     Active Substance: BREXPIPRAZOLE
     Indication: Anxiety
  6. SERTRALINE [Concomitant]
     Active Substance: SERTRALINE HYDROCHLORIDE
     Indication: Product used for unknown indication
     Dosage: 100 MILLIGRAM, ONCE A DAY (50 MG, BID (1 PILL IN MORNING AND LUNCH))
     Route: 065
  7. ALPRAZOLAM [Concomitant]
     Active Substance: ALPRAZOLAM
     Indication: Product used for unknown indication
     Dosage: 2 MILLIGRAM, ONCE A DAY (1 MG, BID (1 PILL IN MORNING AND LUNCH))
     Route: 065
  8. LAMICTAL [Concomitant]
     Active Substance: LAMOTRIGINE
     Indication: Product used for unknown indication
     Dosage: 200 MILLIGRAM, ONCE A DAY (100 MG, BID (PER 12 HOURS))
     Route: 065
  9. ZOLPIDEM [Concomitant]
     Active Substance: ZOLPIDEM TARTRATE
     Indication: Initial insomnia
     Dosage: 5 MILLIGRAM (5 MG (1 PILL IN CASE OF NOT BEING ABLE TO FALL ASLEEP))
     Route: 065
  10. TEGRETOL [Concomitant]
     Active Substance: CARBAMAZEPINE
     Indication: Product used for unknown indication
     Dosage: 800 MILLIGRAM, ONCE A DAY (400 MG, BID (PER 12 HOURS))
     Route: 065
  11. QUETIAPINE FUMARATE [Concomitant]
     Active Substance: QUETIAPINE FUMARATE
     Indication: Product used for unknown indication
     Dosage: 100 MILLIGRAM (100 MG (1 PILL ON THE MORNINGS FOR 7 DAYS))
     Route: 065

REACTIONS (9)
  - Generalised tonic-clonic seizure [Recovered/Resolved]
  - Affect lability [Recovered/Resolved]
  - Anxiety [Recovered/Resolved]
  - Apathy [Recovered/Resolved]
  - Emotional distress [Recovered/Resolved]
  - Nausea [Recovered/Resolved]
  - Regressive behaviour [Recovered/Resolved]
  - Dizziness [Recovered/Resolved]
  - Product use in unapproved indication [Recovered/Resolved]

NARRATIVE: CASE EVENT DATE: 20240529
